FAERS Safety Report 5326725-1 (Version None)
Quarter: 2007Q2

REPORT INFORMATION
  Report Type: 
  Country: None (occurrence: None)
  Receive Date: 20070516
  Receipt Date: 20070511
  Transmission Date: 20071010
  Serious: Yes (Other)
  Sender: FDA-Public Use
  Company Number: AU-SHR-AU-2007-017022

PATIENT
  Age: 46 Year
  Sex: Female

DRUGS (5)
  1. MIRENA [Suspect]
     Indication: MENORRHAGIA
     Dosage: 20 A?G/DAY, CONT
     Route: 015
     Dates: start: 20020101
  2. DIABEX [Concomitant]
     Indication: INSULIN RESISTANCE
     Dosage: 1000 MG, DAILY
  3. AVAPRO [Concomitant]
     Indication: HYPERTENSION
  4. LIPITOR [Concomitant]
  5. GLUCOSAMINE [Concomitant]
     Indication: ARTHRITIS
     Dosage: 1000 MG, DAILY

REACTIONS (5)
  - AMENORRHOEA [None]
  - BREAST CANCER FEMALE [None]
  - COITAL BLEEDING [None]
  - MENOPAUSAL SYMPTOMS [None]
  - METRORRHAGIA [None]
